FAERS Safety Report 8339552-8 (Version None)
Quarter: 2012Q2

REPORT INFORMATION
  Report Type: 
  Country: None (occurrence: None)
  Receive Date: 20120507
  Receipt Date: 20120430
  Transmission Date: 20120825
  Serious: Yes (Other)
  Sender: FDA-Public Use
  Company Number: PHHY2011DE109764

PATIENT
  Age: 65 Year
  Sex: Male

DRUGS (2)
  1. EXFORGE HCT [Suspect]
     Indication: HYPERTENSION
     Dosage: UNK UKN, UNK
     Route: 048
     Dates: start: 20110101
  2. ACYCLOVIR [Suspect]

REACTIONS (2)
  - LIP SWELLING [None]
  - LIP BLISTER [None]
